FAERS Safety Report 8607471-5 (Version None)
Quarter: 2012Q3

REPORT INFORMATION
  Report Type: 
  Country: None (occurrence: None)
  Receive Date: 20120809
  Receipt Date: 20120809
  Transmission Date: 20120928
  Serious: Yes (Life-Threatening, Hospitalization)
  Sender: FDA-Public Use
  Company Number: None

PATIENT
  Age: 69 Year
  Sex: Male
  Weight: 91 kg

DRUGS (1)
  1. PACLITAXEL [Suspect]
     Dosage: 365 MG ONCE IV
     Route: 042
     Dates: start: 20111118, end: 20111118

REACTIONS (2)
  - SHOCK [None]
  - HYPOTENSION [None]
